FAERS Safety Report 15321340 (Version 1)
Quarter: 2018Q3

REPORT INFORMATION
  Report Type: Spontaneous
  Country: JP (occurrence: JP)
  Receive Date: 20180827
  Receipt Date: 20180827
  Transmission Date: 20181010
  Serious: Yes (Other)
  Sender: FDA-Public Use
  Company Number: JP-PFIZER INC-2018336500

PATIENT
  Age: 31 Year
  Sex: Male

DRUGS (6)
  1. MESALAZINE [Concomitant]
     Active Substance: MESALAMINE
     Indication: CROHN^S DISEASE
     Dosage: 3 G, DAILY
  2. MESALAZINE [Concomitant]
     Active Substance: MESALAMINE
     Dosage: UNK, DAILY
  3. OXALIPLATIN. [Suspect]
     Active Substance: OXALIPLATIN
     Indication: METASTASES TO PERITONEUM
     Dosage: UNK, CYCLIC (10 CYCLES)
  4. FLUOROURACIL. [Suspect]
     Active Substance: FLUOROURACIL
     Indication: METASTASES TO PERITONEUM
     Dosage: UNK, CYCLIC (10 CYCLES)
  5. LEUCOVORIN. [Suspect]
     Active Substance: LEUCOVORIN
     Indication: METASTASES TO PERITONEUM
     Dosage: UNK, CYCLIC (10 CYCLES)
  6. PANITUMUMAB [Suspect]
     Active Substance: PANITUMUMAB
     Indication: METASTASES TO PERITONEUM
     Dosage: UNK, CYCLIC (10 CYCLES)

REACTIONS (4)
  - Condition aggravated [Unknown]
  - Neuropathy peripheral [Unknown]
  - Hypomagnesaemia [Unknown]
  - Hypercalcaemia [Unknown]
